FAERS Safety Report 8171056-8 (Version None)
Quarter: 2012Q1

REPORT INFORMATION
  Report Type: 
  Country: None (occurrence: None)
  Receive Date: 20120228
  Receipt Date: 20120216
  Transmission Date: 20120608
  Serious: Yes (Disabling, Other)
  Sender: FDA-Public Use
  Company Number: PHHY2012CA013225

PATIENT
  Sex: Female

DRUGS (6)
  1. CLOZARIL [Suspect]
     Indication: BIPOLAR DISORDER
     Dosage: 25 TO 200 MG
     Dates: start: 20120122, end: 20120209
  2. ZYPREXA [Concomitant]
  3. METFORMIN HCL [Concomitant]
     Indication: TYPE 2 DIABETES MELLITUS
     Dosage: 500 MG, TID
  4. VALPROATE SODIUM [Concomitant]
     Dosage: 1000 MG/DAY
  5. LITHIUM [Concomitant]
     Dosage: 1200 MG/DAY
  6. SYNTHROID [Concomitant]
     Dosage: 75 UG/DAY

REACTIONS (2)
  - RENAL FAILURE ACUTE [None]
  - ANTIPSYCHOTIC DRUG LEVEL INCREASED [None]
